FAERS Safety Report 4303870-0 (Version None)
Quarter: 2004Q1

REPORT INFORMATION
  Report Type: 
  Country: None (occurrence: None)
  Receive Date: 20040225
  Receipt Date: 20031215
  Transmission Date: 20041129
  Serious: Yes (Other)
  Sender: FDA-Public Use
  Company Number: AU-GLAXOSMITHKLINE-B0317872A

PATIENT
  Sex: Female

DRUGS (1)
  1. SALBUTAMOL [Suspect]

REACTIONS (8)
  - COUGH [None]
  - CYANOSIS [None]
  - DIZZINESS [None]
  - HYPOAESTHESIA [None]
  - PHARMACEUTICAL PRODUCT COMPLAINT [None]
  - PHARYNGOLARYNGEAL PAIN [None]
  - RESPIRATORY DISORDER [None]
  - SYNCOPE [None]
